FAERS Safety Report 17015080 (Version 2)
Quarter: 2019Q4

REPORT INFORMATION
  Report Type: Spontaneous
  Country: US (occurrence: US)
  Receive Date: 20191111
  Receipt Date: 20191120
  Transmission Date: 20200122
  Serious: Yes (Hospitalization, Other)
  Sender: FDA-Public Use
  Company Number: US-TORRENT-00009481

PATIENT
  Age: 62 Year
  Sex: Female
  Weight: 68 kg

DRUGS (4)
  1. WARFARIN [Concomitant]
     Active Substance: WARFARIN
     Indication: PRODUCT USED FOR UNKNOWN INDICATION
     Dosage: UNKNOWN
  2. LOSARTAN AND HYDROCHLOROTHIAZIDE [Suspect]
     Active Substance: HYDROCHLOROTHIAZIDE\LOSARTAN POTASSIUM
     Indication: HYPERTENSION
     Dosage: HALF TABLETS OF LOSARTAN POTASSIUM HCTZ 100/12.5 MG, HALF IN MORNING AND HALF IN NIGHT
     Route: 048
     Dates: start: 2018
  3. METFORMIN [Concomitant]
     Active Substance: METFORMIN HYDROCHLORIDE
     Indication: PRODUCT USED FOR UNKNOWN INDICATION
     Dosage: UNKNOWN
  4. METOPROLOL. [Concomitant]
     Active Substance: METOPROLOL
     Indication: PRODUCT USED FOR UNKNOWN INDICATION
     Dosage: UNKNOWN

REACTIONS (8)
  - Breast cancer [Unknown]
  - Nephrolithiasis [Unknown]
  - Wrong technique in product usage process [Unknown]
  - Orthostatic hypertension [Unknown]
  - Pruritus [Unknown]
  - Haematuria [Recovered/Resolved]
  - Cystitis [Unknown]
  - Salivary gland enlargement [Unknown]

NARRATIVE: CASE EVENT DATE: 201011
